FAERS Safety Report 10017262 (Version 2)
Quarter: 2014Q2

REPORT INFORMATION
  Report Type: Spontaneous
  Country: US (occurrence: US)
  Receive Date: 20140318
  Receipt Date: 20140506
  Transmission Date: 20141212
  Serious: No
  Sender: FDA-Public Use
  Company Number: US-SHIRE-US201400416

PATIENT
  Age: 46 Year
  Sex: Female
  Weight: 64.85 kg

DRUGS (2)
  1. VYVANSE [Suspect]
     Indication: HYPERSOMNIA
     Dosage: 70 MG, ONE DOSE
     Route: 048
     Dates: start: 20140308, end: 20140308
  2. VYVANSE [Suspect]
     Indication: POSTURAL ORTHOSTATIC TACHYCARDIA SYNDROME

REACTIONS (4)
  - Feeling abnormal [Unknown]
  - Sluggishness [Unknown]
  - Head discomfort [Unknown]
  - Drug ineffective for unapproved indication [Unknown]
